FAERS Safety Report 5141923-8 (Version None)
Quarter: 2006Q4

REPORT INFORMATION
  Report Type: 
  Country: None (occurrence: None)
  Receive Date: 20061102
  Receipt Date: 20060727
  Transmission Date: 20070319
  Serious: Yes (Hospitalization)
  Sender: FDA-Public Use
  Company Number: PHEH2006US09639

PATIENT
  Age: 66 Year
  Sex: Female

DRUGS (7)
  1. GLEEVEC [Suspect]
     Indication: CHRONIC MYELOID LEUKAEMIA
     Dosage: 400 MG, QD
     Route: 048
     Dates: start: 20050101
  2. NEXIUM [Concomitant]
     Route: 048
  3. XANAX [Concomitant]
     Indication: ANXIETY DISORDER
     Route: 048
  4. METOPROLOL TARTRATE [Concomitant]
     Indication: HYPERTENSION
     Route: 048
     Dates: end: 20060101
  5. SYNTHROID [Concomitant]
     Route: 048
  6. HYDROXYUREA [Concomitant]
     Indication: CHRONIC MYELOID LEUKAEMIA
     Route: 048
     Dates: start: 20050101, end: 20050201
  7. DIOVAN HCT [Concomitant]
     Indication: HYPERTENSION
     Route: 048
     Dates: start: 20060101

REACTIONS (27)
  - ABASIA [None]
  - ABNORMAL BEHAVIOUR [None]
  - ANAEMIA [None]
  - BLOOD POTASSIUM ABNORMAL [None]
  - CARDIAC FAILURE CONGESTIVE [None]
  - CARDIAC VALVE DISEASE [None]
  - COSTOCHONDRITIS [None]
  - DIARRHOEA [None]
  - FATIGUE [None]
  - HAEMATOCRIT DECREASED [None]
  - HAEMOGLOBIN DECREASED [None]
  - HYPERTENSION [None]
  - INJURY ASPHYXIATION [None]
  - LACTOSE INTOLERANCE [None]
  - LEFT VENTRICULAR END-DIASTOLIC PRESSURE INCREASED [None]
  - LOSS OF CONSCIOUSNESS [None]
  - MUSCULOSKELETAL STIFFNESS [None]
  - NECK PAIN [None]
  - OXYGEN SATURATION DECREASED [None]
  - PERIORBITAL OEDEMA [None]
  - RESPIRATORY FAILURE [None]
  - SPEECH DISORDER [None]
  - STRESS [None]
  - TEMPERATURE INTOLERANCE [None]
  - THERAPEUTIC RESPONSE UNEXPECTED [None]
  - THIRST [None]
  - VENTRICULAR DYSFUNCTION [None]
